FAERS Safety Report 5477071-7 (Version None)
Quarter: 2007Q4

REPORT INFORMATION
  Report Type: 
  Country: None (occurrence: None)
  Receive Date: 20071002
  Receipt Date: 20071002
  Transmission Date: 20080405
  Serious: No
  Sender: FDA-Public Use
  Company Number: None

PATIENT
  Age: 60 Year
  Sex: Male
  Weight: 86 kg

DRUGS (7)
  1. PHENYTOIN SODIUM [Suspect]
     Indication: CONVULSION
     Dates: start: 20070403
  2. ADVAIR DISKUS 100/50 [Concomitant]
  3. CLARINEX [Concomitant]
  4. THEOPHYLLINE [Concomitant]
  5. FLOVENT [Concomitant]
  6. PROVENTIL [Concomitant]
  7. JUICE PLUS SUPPLEMENT [Concomitant]

REACTIONS (5)
  - COORDINATION ABNORMAL [None]
  - DRUG LEVEL INCREASED [None]
  - FATIGUE [None]
  - OVERDOSE [None]
  - PHARMACEUTICAL PRODUCT COMPLAINT [None]
